FAERS Safety Report 17245085 (Version 1)
Quarter: 2020Q1

REPORT INFORMATION
  Report Type: Spontaneous
  Country: US (occurrence: US)
  Receive Date: 20200108
  Receipt Date: 20200108
  Transmission Date: 20200409
  Serious: Yes (Other)
  Sender: FDA-Public Use
  Company Number: US-APOTEX-2020AP005088

PATIENT
  Age: 45 Year
  Sex: Female
  Weight: 141 kg

DRUGS (6)
  1. PAROXETINE. [Suspect]
     Active Substance: PAROXETINE
     Indication: DEPRESSION
     Dosage: 40 MG, QD DAILY
     Route: 065
  2. DEXTROMETHORPHAN HYDROBROMIDE. [Suspect]
     Active Substance: DEXTROMETHORPHAN HYDROBROMIDE
     Indication: NASOPHARYNGITIS
     Dosage: 10 MG
     Route: 065
  3. CLONAZEPAM. [Concomitant]
     Active Substance: CLONAZEPAM
     Indication: PRODUCT USED FOR UNKNOWN INDICATION
     Dosage: 0.25 MG, BID
     Route: 065
  4. ACETAMINOPHEN. [Concomitant]
     Active Substance: ACETAMINOPHEN
     Indication: NASOPHARYNGITIS
     Dosage: 250 MG
     Route: 065
  5. PSEUDOEPHEDRINE HYDROCHLORIDE. [Suspect]
     Active Substance: PSEUDOEPHEDRINE HYDROCHLORIDE
     Indication: NASOPHARYNGITIS
     Dosage: 30 MG
     Route: 065
  6. MIRTAZAPINE. [Suspect]
     Active Substance: MIRTAZAPINE
     Indication: DEPRESSION
     Dosage: UNK
     Route: 065

REACTIONS (16)
  - Ischaemic stroke [Recovered/Resolved]
  - Clumsiness [Recovered/Resolved]
  - Blood pressure systolic decreased [Recovered/Resolved]
  - Carcinoid tumour pulmonary [Recovered/Resolved]
  - Cerebral artery stenosis [Recovered/Resolved]
  - Headache [Recovered/Resolved]
  - Carotid artery aneurysm [Recovered/Resolved]
  - Cardiovascular disorder [Recovered/Resolved]
  - Reversible cerebral vasoconstriction syndrome [Recovered/Resolved]
  - Hypoaesthesia [Recovered/Resolved]
  - Vasoconstriction [Recovered/Resolved]
  - Neurological symptom [Recovered/Resolved]
  - Cerebrovascular disorder [Recovered/Resolved]
  - Nausea [Recovered/Resolved]
  - Peripheral vascular disorder [Recovered/Resolved]
  - Thunderclap headache [Recovered/Resolved]
